FAERS Safety Report 10307307 (Version 4)
Quarter: 2015Q3

REPORT INFORMATION
  Report Type: Spontaneous
  Country: US (occurrence: US)
  Receive Date: 20140716
  Receipt Date: 20150820
  Transmission Date: 20151125
  Serious: No
  Sender: FDA-Public Use
  Company Number: US-AMGEN-USASP2014052616

PATIENT
  Age: 77 Year
  Sex: Female
  Weight: 47.17 kg

DRUGS (12)
  1. ENBREL [Suspect]
     Active Substance: ETANERCEPT
     Indication: PSORIATIC ARTHROPATHY
  2. OMEPRAZOLE. [Concomitant]
     Active Substance: OMEPRAZOLE
     Indication: GASTROOESOPHAGEAL REFLUX DISEASE
     Dosage: 40 MG, QD
     Route: 048
     Dates: start: 200706
  3. VALSARTAN + HCT ARROW [Concomitant]
     Indication: HYPERTENSION
     Dosage: 160-12.5 MG, QD
     Route: 048
     Dates: start: 201303
  4. LACTULOSE. [Concomitant]
     Active Substance: LACTULOSE
     Indication: CONSTIPATION
     Dosage: 20 G, QHS
     Route: 048
     Dates: start: 201407
  5. METFORMIN [Concomitant]
     Active Substance: METFORMIN HYDROCHLORIDE
     Indication: DIABETES MELLITUS
     Dosage: 50 MG, BID
     Route: 048
     Dates: start: 200709
  6. METOPROLOL [Concomitant]
     Active Substance: METOPROLOL
     Indication: HYPERTENSION
     Dosage: 50 MG, QD
     Route: 048
     Dates: start: 201012
  7. POLYETHYLENE GLYCOL [Concomitant]
     Active Substance: POLYETHYLENE GLYCOLS
     Indication: CONSTIPATION
     Dosage: 17 G, QD
     Route: 048
     Dates: start: 201401
  8. ENBREL [Suspect]
     Active Substance: ETANERCEPT
     Indication: PSORIASIS
     Dosage: 50 MG, 2 TIMES/WK
     Route: 058
     Dates: start: 20131011
  9. GABAPENTIN. [Concomitant]
     Active Substance: GABAPENTIN
     Indication: RESTLESS LEGS SYNDROME
     Dosage: 100-300 MG, QHS
     Route: 048
     Dates: start: 201309
  10. TRAMADOL. [Concomitant]
     Active Substance: TRAMADOL
     Indication: PAIN
     Dosage: 100 MG, Q6H PRN
     Route: 048
     Dates: start: 201201
  11. CLOBETASOL [Concomitant]
     Active Substance: CLOBETASOL
     Indication: PSORIASIS
     Dosage: DAILY
     Route: 061
     Dates: start: 201009
  12. LORAZEPAM. [Concomitant]
     Active Substance: LORAZEPAM
     Indication: ANXIETY
     Dosage: 0.5 MG, BID
     Route: 048
     Dates: start: 200709

REACTIONS (13)
  - Hypersomnia [Recovered/Resolved]
  - Pain [Recovered/Resolved]
  - Fatigue [Unknown]
  - Pain in extremity [Unknown]
  - Bedridden [Unknown]
  - Gastrointestinal disorder [Unknown]
  - Drug dose omission [Unknown]
  - Pyrexia [Unknown]
  - Abdominal pain [Recovered/Resolved]
  - Headache [Unknown]
  - Abdominal pain upper [Unknown]
  - Chills [Unknown]
  - Anxiety [Unknown]

NARRATIVE: CASE EVENT DATE: 201407
